FAERS Safety Report 8438218-3 (Version None)
Quarter: 2012Q2

REPORT INFORMATION
  Report Type: 
  Country: None (occurrence: None)
  Receive Date: 20120614
  Receipt Date: 20120608
  Transmission Date: 20120825
  Serious: Yes (Death)
  Sender: FDA-Public Use
  Company Number: CN-PFIZER INC-2011106245

PATIENT
  Age: 79 Year
  Sex: Male

DRUGS (2)
  1. AMLODIPINE [Concomitant]
  2. SUNITINIB MALATE [Suspect]
     Indication: RENAL CELL CARCINOMA
     Dosage: 50 MG, 1X/DAY
     Route: 048
     Dates: start: 20110316, end: 20110412

REACTIONS (1)
  - RESPIRATORY FAILURE [None]
